FAERS Safety Report 4661973-5 (Version None)
Quarter: 2005Q2

REPORT INFORMATION
  Report Type: 
  Country: None (occurrence: None)
  Receive Date: 20050511
  Receipt Date: 20050511
  Transmission Date: 20051028
  Serious: Yes (Hospitalization)
  Sender: FDA-Public Use
  Company Number: None

PATIENT
  Sex: Male

DRUGS (1)
  1. PROPOFOL [Suspect]
     Indication: PROPHYLAXIS
     Dosage: 10MG/ML IV CONT. PRN
     Route: 042
     Dates: start: 20050124, end: 20050126

REACTIONS (1)
  - LIPASE INCREASED [None]
